FAERS Safety Report 9319640 (Version 1)
Quarter: 2013Q2

REPORT INFORMATION
  Report Type: Spontaneous
  Country: US (occurrence: None)
  Receive Date: 20130529
  Receipt Date: 20130529
  Transmission Date: 20140414
  Serious: Yes (Other)
  Sender: FDA-Public Use
  Company Number: None

PATIENT
  Age: 54 Year
  Sex: Female
  Weight: 68.04 kg

DRUGS (1)
  1. TIOCONAZOLE I [Suspect]
     Indication: FUNGAL INFECTION
     Dosage: 1 APPLICATOR 1 TIME VAG
     Dates: start: 20130527, end: 20130527

REACTIONS (2)
  - Application site pain [None]
  - Product quality issue [None]
